FAERS Safety Report 23015621 (Version 2)
Quarter: 2023Q4

REPORT INFORMATION
  Report Type: Spontaneous
  Country: PL (occurrence: PL)
  Receive Date: 20231002
  Receipt Date: 20231030
  Transmission Date: 20240109
  Serious: Yes (Hospitalization, Other)
  Sender: FDA-Public Use
  Company Number: PL-009507513-2309POL010337

PATIENT
  Age: 69 Year
  Sex: Male

DRUGS (1)
  1. PEMBROLIZUMAB [Suspect]
     Active Substance: PEMBROLIZUMAB
     Indication: Lung adenocarcinoma
     Dosage: 2 MILLIGRAM/KILOGRAMS, EVERY 3 WEEKS (Q3W)
     Dates: start: 20220706

REACTIONS (4)
  - Immune-mediated myocarditis [Recovered/Resolved]
  - Cardiotoxicity [Recovered/Resolved]
  - Immune-mediated hepatic disorder [Recovered/Resolved]
  - Hepatotoxicity [Recovered/Resolved]

NARRATIVE: CASE EVENT DATE: 20220101
